FAERS Safety Report 7759826-9 (Version None)
Quarter: 2011Q3

REPORT INFORMATION
  Report Type: 
  Country: None (occurrence: None)
  Receive Date: 20110915
  Receipt Date: 20110831
  Transmission Date: 20111222
  Serious: Yes (Death, Hospitalization)
  Sender: FDA-Public Use
  Company Number: 2011AP001944

PATIENT
  Age: 46 Year
  Sex: Female

DRUGS (1)
  1. MYCOPHENOLATE MOFETIL [Suspect]
     Indication: IMMUNOSUPPRESSION

REACTIONS (10)
  - HAEMODYNAMIC INSTABILITY [None]
  - PYREXIA [None]
  - DYSPNOEA [None]
  - ENCEPHALOPATHY [None]
  - HEPATIC NECROSIS [None]
  - HYPOGLYCAEMIA [None]
  - INTERNATIONAL NORMALISED RATIO DECREASED [None]
  - ACUTE HEPATIC FAILURE [None]
  - ADENOVIRAL HEPATITIS [None]
  - GENERAL PHYSICAL HEALTH DETERIORATION [None]
